FAERS Safety Report 5507429-9 (Version None)
Quarter: 2007Q4

REPORT INFORMATION
  Report Type: 
  Country: None (occurrence: None)
  Receive Date: 20071106
  Receipt Date: 20071105
  Transmission Date: 20080405
  Serious: Yes (Life-Threatening)
  Sender: FDA-Public Use
  Company Number: JP-BRISTOL-MYERS SQUIBB COMPANY-13968490

PATIENT
  Age: 79 Year
  Sex: Male

DRUGS (5)
  1. RESLIN [Suspect]
     Indication: DEPRESSION
     Route: 048
     Dates: start: 20071009, end: 20071015
  2. DOGMATYL [Suspect]
     Route: 048
     Dates: start: 20071009, end: 20071015
  3. PAXIL [Suspect]
     Route: 048
     Dates: start: 20071009, end: 20071015
  4. MEILAX [Suspect]
     Route: 048
     Dates: start: 20071009
  5. DEPAS [Concomitant]

REACTIONS (1)
  - PANCYTOPENIA [None]
